FAERS Safety Report 12215189 (Version 1)
Quarter: 2016Q1

REPORT INFORMATION
  Report Type: Spontaneous
  Country: IT (occurrence: IT)
  Receive Date: 20160328
  Receipt Date: 20160328
  Transmission Date: 20160526
  Serious: Yes (Other)
  Sender: FDA-Public Use
  Company Number: IT-SA-2016SA058829

PATIENT
  Age: 72 Year
  Sex: Female
  Weight: 72 kg

DRUGS (7)
  1. FOLINIC ACID [Concomitant]
     Active Substance: LEUCOVORIN
     Route: 042
     Dates: start: 20160315, end: 20160315
  2. ELOXATIN [Suspect]
     Active Substance: OXALIPLATIN
     Indication: COLON CANCER
     Route: 042
     Dates: start: 20160315, end: 20160315
  3. ONDANSETRON HYDROCHLORIDE. [Concomitant]
     Active Substance: ONDANSETRON HYDROCHLORIDE
     Route: 042
     Dates: start: 20160315, end: 20160315
  4. ELOXATIN [Suspect]
     Active Substance: OXALIPLATIN
     Indication: COLON CANCER
     Route: 042
     Dates: start: 20160315, end: 20160315
  5. 5 FU [Concomitant]
     Active Substance: FLUOROURACIL
     Dosage: FORRM:SOLUTION FOR IV INFUSION
     Route: 042
     Dates: start: 20160315, end: 20160317
  6. 5 FU [Concomitant]
     Active Substance: FLUOROURACIL
     Dosage: FORM:SOLUTION FOR IV INFUSION
     Route: 042
     Dates: start: 20160315, end: 20160315
  7. DEXAMETHASONE. [Concomitant]
     Active Substance: DEXAMETHASONE
     Route: 042
     Dates: start: 20160315, end: 20160315

REACTIONS (3)
  - Hypersensitivity [Recovering/Resolving]
  - Respiratory tract oedema [Recovering/Resolving]
  - Bronchospasm [Recovering/Resolving]

NARRATIVE: CASE EVENT DATE: 20160315
